FAERS Safety Report 25958935 (Version 1)
Quarter: 2025Q4

REPORT INFORMATION
  Report Type: Spontaneous
  Country: EU (occurrence: EU)
  Receive Date: 20251025
  Receipt Date: 20251025
  Transmission Date: 20260117
  Serious: Yes (Other)
  Sender: RISING PHARMACEUTICALS
  Company Number: EU-RISINGPHARMA-ES-2025RISLIT00537

PATIENT
  Age: 58 Year
  Sex: Male

DRUGS (3)
  1. LIDOCAINE HYDROCHLORIDE [Suspect]
     Active Substance: LIDOCAINE HYDROCHLORIDE
     Indication: Anaesthesia
     Dosage: INTRAVITREAL  INJECTION
     Route: 056
  2. BUPIVACAINE [Suspect]
     Active Substance: BUPIVACAINE
     Indication: Anaesthesia
     Dosage: INTRAVITREAL INJECTION
     Route: 056
  3. HYALURONIDASE [Concomitant]
     Active Substance: HYALURONIDASE
     Indication: Product used for unknown indication
     Dosage: 150  IU/1  ML
     Route: 065

REACTIONS (6)
  - Macular ischaemia [Recovered/Resolved]
  - Vitreous haemorrhage [Recovered/Resolved]
  - Open globe injury [Recovered/Resolved]
  - Retinal haemorrhage [Recovered/Resolved]
  - Retinal artery occlusion [Recovered/Resolved]
  - Vascular occlusion [Recovered/Resolved]
